FAERS Safety Report 15967960 (Version 1)
Quarter: 2019Q1

REPORT INFORMATION
  Report Type: Spontaneous
  Country: US (occurrence: US)
  Receive Date: 20190124
  Receipt Date: 20190124
  Transmission Date: 20190418
  Serious: No
  Sender: FDA-Public Use
  Company Number: None

PATIENT
  Age: 48 Year
  Sex: Female

DRUGS (1)
  1. TALTZ [Suspect]
     Active Substance: IXEKIZUMAB
     Indication: PSORIATIC ARTHROPATHY
     Route: 058
     Dates: start: 201807

REACTIONS (4)
  - Product storage error [None]
  - Peripheral swelling [None]
  - Injection site vesicles [None]
  - Injection site pruritus [None]

NARRATIVE: CASE EVENT DATE: 20190124
